FAERS Safety Report 7835148-2 (Version None)
Quarter: 2011Q4

REPORT INFORMATION
  Report Type: 
  Country: None (occurrence: None)
  Receive Date: 20111024
  Receipt Date: 20110913
  Transmission Date: 20120403
  Serious: Yes (Other)
  Sender: FDA-Public Use
  Company Number: PHHY2011BR86304

PATIENT

DRUGS (8)
  1. METFORMIN HCL [Concomitant]
     Dosage: 850 MG, UNK
  2. FUROSEMIDE [Concomitant]
     Dosage: 40 MG, UNK
  3. SIMVASTATIN [Suspect]
     Indication: BLOOD PRESSURE SYSTOLIC INCREASED
     Dosage: 40 MG, QD
     Route: 048
  4. PROPATYLNITRATE [Concomitant]
     Dosage: 10 MG, BID
  5. ALISKIREN+AMLODIPINE [Suspect]
  6. CAPTOPRIL [Suspect]
     Indication: BLOOD PRESSURE SYSTOLIC INCREASED
     Dosage: 25 MG, BID
     Route: 048
  7. ATENOLOL [Suspect]
     Indication: BLOOD PRESSURE SYSTOLIC INCREASED
     Dosage: 50 MG/DAY
     Route: 048
  8. HYDROCHLOROTHIAZIDE [Concomitant]
     Dosage: 25 MG, UNK

REACTIONS (9)
  - LEFT VENTRICULAR FAILURE [None]
  - BLOOD GLUCOSE INCREASED [None]
  - BLOOD UREA INCREASED [None]
  - BLOOD TRIGLYCERIDES INCREASED [None]
  - PROTEINURIA [None]
  - DRUG INEFFECTIVE [None]
  - ELECTROCARDIOGRAM QT SHORTENED [None]
  - OEDEMA PERIPHERAL [None]
  - BLOOD CREATININE INCREASED [None]
